FAERS Safety Report 5068943-6 (Version None)
Quarter: 2006Q3

REPORT INFORMATION
  Report Type: 
  Country: None (occurrence: None)
  Receive Date: 20060802
  Receipt Date: 20060721
  Transmission Date: 20061208
  Serious: Yes (Death)
  Sender: FDA-Public Use
  Company Number: GR-BRISTOL-MYERS SQUIBB COMPANY-13449137

PATIENT
  Age: 28 Year
  Sex: Male

DRUGS (2)
  1. ABILIFY [Suspect]
     Indication: SCHIZOPHRENIA, PARANOID TYPE
     Dosage: 15 MG/D FOR 1 WEEK, THEN 20 MG THEREAFTER
     Route: 048
     Dates: end: 20060601
  2. RISPERDAL [Concomitant]
     Dosage: 4 MG/D X 5 YRS, THEN 2 MG X 21 DAYS
     Route: 048
     Dates: end: 20050601

REACTIONS (1)
  - COMPLETED SUICIDE [None]
